FAERS Safety Report 10639845 (Version 1)
Quarter: 2014Q4

REPORT INFORMATION
  Report Type: Spontaneous
  Country: US (occurrence: None)
  Receive Date: 20141205
  Receipt Date: 20141205
  Transmission Date: 20150529
  Serious: Yes (Hospitalization)
  Sender: FDA-Public Use
  Company Number: None

PATIENT
  Age: 59 Year
  Sex: Male
  Weight: 89.53 kg

DRUGS (15)
  1. PREDNISONE. [Concomitant]
     Active Substance: PREDNISONE
  2. VALCYTE [Concomitant]
     Active Substance: VALGANCICLOVIR HYDROCHLORIDE
  3. LISINOPRIL. [Concomitant]
     Active Substance: LISINOPRIL
  4. FLUCONAZOLE. [Concomitant]
     Active Substance: FLUCONAZOLE
  5. NOVOLOG [Concomitant]
     Active Substance: INSULIN ASPART
  6. FERROUS SULFATE [Concomitant]
     Active Substance: FERROUS SULFATE\FERROUS SULFATE, DRIED
  7. OMEPRAZOLE. [Concomitant]
     Active Substance: OMEPRAZOLE
  8. OXYCONTIN [Concomitant]
     Active Substance: OXYCODONE HYDROCHLORIDE
  9. LENALIDOMIDE [Suspect]
     Active Substance: LENALIDOMIDE
     Indication: DIFFUSE LARGE B-CELL LYMPHOMA
     Dosage: 20MG PO DAILY 21 DAYS
     Route: 048
     Dates: start: 20141024, end: 20141130
  10. BRENTUXIMAB VEDOLIN [Suspect]
     Active Substance: BRENTUXIMAB VEDOTIN
     Indication: DIFFUSE LARGE B-CELL LYMPHOMA
     Dosage: 1.2MG/KG IV DAY 1
     Route: 042
     Dates: start: 20141024, end: 20141113
  11. ONDANSETRON [Concomitant]
     Active Substance: ONDANSETRON
  12. PROCHLORPERAZINE MALEATE. [Concomitant]
     Active Substance: PROCHLORPERAZINE MALEATE
  13. GABAPENTIN. [Concomitant]
     Active Substance: GABAPENTIN
  14. LORAZEPAM. [Concomitant]
     Active Substance: LORAZEPAM
  15. SIMVASTATIN. [Concomitant]
     Active Substance: SIMVASTATIN

REACTIONS (9)
  - Diarrhoea [None]
  - Asthenia [None]
  - Hypophagia [None]
  - Haemoglobin decreased [None]
  - White blood cell count decreased [None]
  - Fatigue [None]
  - Febrile neutropenia [None]
  - Dehydration [None]
  - Platelet count decreased [None]

NARRATIVE: CASE EVENT DATE: 20141128
